FAERS Safety Report 23493074 (Version 2)
Quarter: 2024Q1

REPORT INFORMATION
  Report Type: Spontaneous
  Country: IT (occurrence: IT)
  Receive Date: 20240207
  Receipt Date: 20240227
  Transmission Date: 20240410
  Serious: Yes (Hospitalization)
  Sender: FDA-Public Use
  Company Number: None

PATIENT
  Age: 64 Year
  Sex: Female
  Weight: 70 kg

DRUGS (4)
  1. ONTRUZANT [Suspect]
     Active Substance: TRASTUZUMAB-DTTB
     Indication: HER2 positive breast cancer
     Dosage: 150 MG VIAL
     Route: 042
     Dates: start: 20231227, end: 20231227
  2. PACLITAXEL [Suspect]
     Active Substance: PACLITAXEL
     Indication: HER2 positive breast cancer
     Dosage: 100 ML VIAL CONTAINING 600 MG OF PACLITAXEL
     Route: 042
     Dates: start: 20231227, end: 20231227
  3. PACLITAXEL [Suspect]
     Active Substance: PACLITAXEL
     Dosage: 100 ML VIAL CONTAINING 600 MG OF PACLITAXEL
     Route: 042
     Dates: start: 20240103, end: 20240103
  4. PERJETA [Suspect]
     Active Substance: PERTUZUMAB
     Indication: HER2 positive breast cancer
     Dosage: A 14 ML VIAL OF CONCENTRATE CONTAINS 420 MG OF PERTUZUMAB.
     Route: 042
     Dates: start: 20231227, end: 20231227

REACTIONS (3)
  - Atrial fibrillation [Recovering/Resolving]
  - Ejection fraction decreased [Recovering/Resolving]
  - Oedema [Recovered/Resolved]

NARRATIVE: CASE EVENT DATE: 20240106
